FAERS Safety Report 22157880 (Version 4)
Quarter: 2025Q2

REPORT INFORMATION
  Report Type: Spontaneous
  Country: US (occurrence: US)
  Receive Date: 20230330
  Receipt Date: 20250408
  Transmission Date: 20250716
  Serious: Yes (Other)
  Sender: PFIZER
  Company Number: US-PFIZER INC-PV202300057662

PATIENT
  Age: 62 Year
  Sex: Female

DRUGS (15)
  1. IBRANCE [Suspect]
     Active Substance: PALBOCICLIB
     Indication: Breast cancer
     Dosage: 21 DAYS ON, 7 DAYS OFF
     Route: 048
     Dates: start: 202001
  2. IBRANCE [Suspect]
     Active Substance: PALBOCICLIB
     Dosage: 21 DAYS ON, 7 DAYS OFF
     Route: 048
     Dates: start: 20210630
  3. IBRANCE [Suspect]
     Active Substance: PALBOCICLIB
     Route: 048
     Dates: start: 20231229
  4. ASPIRIN [Concomitant]
     Active Substance: ASPIRIN
  5. FULVESTRANT [Concomitant]
     Active Substance: FULVESTRANT
  6. ONDANSETRON [Concomitant]
     Active Substance: ONDANSETRON
  7. PRILOSEC [Concomitant]
     Active Substance: OMEPRAZOLE MAGNESIUM
  8. ASPIRIN [Concomitant]
     Active Substance: ASPIRIN
  9. TYLENOL [Concomitant]
     Active Substance: ACETAMINOPHEN
  10. ALPRAZOLAM [Concomitant]
     Active Substance: ALPRAZOLAM
  11. CELECOXIB [Concomitant]
     Active Substance: CELECOXIB
  12. DULOXETINE [Concomitant]
     Active Substance: DULOXETINE
  13. ESCITALOPRAM [Concomitant]
     Active Substance: ESCITALOPRAM OXALATE
  14. GABAPENTIN [Concomitant]
     Active Substance: GABAPENTIN
  15. OMEPRAZOLE [Concomitant]
     Active Substance: OMEPRAZOLE

REACTIONS (2)
  - Breast cancer [Unknown]
  - COVID-19 [Unknown]
